FAERS Safety Report 17252468 (Version 3)
Quarter: 2021Q1

REPORT INFORMATION
  Report Type: Spontaneous
  Country: US (occurrence: US)
  Receive Date: 20200109
  Receipt Date: 20210120
  Transmission Date: 20210419
  Serious: No
  Sender: FDA-Public Use
  Company Number: US-PFIZER INC-2019137841

PATIENT
  Age: 89 Year
  Sex: Male
  Weight: 73 kg

DRUGS (2)
  1. LYRICA [Suspect]
     Active Substance: PREGABALIN
     Dosage: 25 MG, UNK
  2. LYRICA [Suspect]
     Active Substance: PREGABALIN
     Indication: DIABETIC NEUROPATHY
     Dosage: 2 DF, 2X/DAY, (RED AND WHITE CAPSULE?1 CAPSULE TAKEN BY MOUTH IN MORNING AND AT NIGHT)
     Route: 048

REACTIONS (2)
  - Feeling abnormal [Unknown]
  - Insomnia [Not Recovered/Not Resolved]
